FAERS Safety Report 5545795-9 (Version None)
Quarter: 2007Q4

REPORT INFORMATION
  Report Type: 
  Country: None (occurrence: None)
  Receive Date: 20071207
  Receipt Date: 20071123
  Transmission Date: 20080405
  Serious: Yes (Hospitalization)
  Sender: FDA-Public Use
  Company Number: TNZFR200700076

PATIENT
  Age: 87 Year
  Sex: Female

DRUGS (8)
  1. INNOHEP [Suspect]
     Dosage: (DAILY), SUBCUTANEOUS
     Route: 058
  2. CYCLO 3 (FABROVEN) [Concomitant]
  3. VASTAREL (TRIMETAZIDINE HYDROCHLORIDE) [Concomitant]
  4. RAMIPRIL [Concomitant]
  5. MIXTARD (INITARD) [Concomitant]
  6. AMLODIPINE BESYLATE [Concomitant]
  7. LASIX [Concomitant]
  8. LIPANTHYL (FENFIBRATE) [Concomitant]

REACTIONS (6)
  - DEHYDRATION [None]
  - DRUG TOXICITY [None]
  - GASTRIC ULCER HAEMORRHAGE [None]
  - RECTAL HAEMORRHAGE [None]
  - RENAL FAILURE ACUTE [None]
  - RHABDOMYOLYSIS [None]
